FAERS Safety Report 10264782 (Version 2)
Quarter: 2014Q2

REPORT INFORMATION
  Report Type: Spontaneous
  Country: JP (occurrence: JP)
  Receive Date: 20140627
  Receipt Date: 20140627
  Transmission Date: 20141212
  Serious: Yes (Hospitalization)
  Sender: FDA-Public Use
  Company Number: JP-JNJFOC-20140110893

PATIENT
  Age: 61 Year
  Sex: Female
  Weight: 43 kg

DRUGS (12)
  1. FLORID ORAL GEL 2% [Suspect]
     Indication: ORAL CANDIDIASIS
     Route: 049
     Dates: start: 20130822, end: 20130904
  2. FLORID ORAL GEL 2% [Suspect]
     Indication: ORAL CANDIDIASIS
     Route: 049
     Dates: start: 20130814, end: 20130814
  3. FLORID ORAL GEL 2% [Suspect]
     Indication: ORAL CANDIDIASIS
     Route: 049
     Dates: start: 20130822, end: 20130904
  4. FLORID ORAL GEL 2% [Suspect]
     Indication: ORAL CANDIDIASIS
     Route: 049
     Dates: start: 20130814, end: 20130814
  5. SEROQUEL [Concomitant]
     Indication: PARKINSON^S DISEASE
     Route: 048
  6. NELBON [Concomitant]
     Route: 048
  7. JUVELA N [Concomitant]
     Route: 048
  8. ZYLORIC [Concomitant]
     Route: 048
  9. PROCYLIN [Concomitant]
     Indication: PERIPHERAL ARTERIAL OCCLUSIVE DISEASE
     Route: 048
  10. MAGMITT [Concomitant]
     Route: 048
     Dates: start: 20130813
  11. GASCON [Concomitant]
     Route: 048
     Dates: start: 20130829, end: 20130907
  12. PRORANON [Concomitant]
     Indication: KERATITIS
     Route: 047
     Dates: end: 20130810

REACTIONS (3)
  - Bundle branch block [Not Recovered/Not Resolved]
  - Hospitalisation [Not Recovered/Not Resolved]
  - Ear pain [Recovered/Resolved]
